FAERS Safety Report 9971357 (Version 1)
Quarter: 2014Q1

REPORT INFORMATION
  Report Type: Spontaneous
  Country: US (occurrence: None)
  Receive Date: 20140127
  Receipt Date: 20140127
  Transmission Date: 20141002
  Serious: Yes (Other)
  Sender: FDA-Public Use
  Company Number: 1269172

PATIENT
  Sex: Female

DRUGS (1)
  1. RITUXAN [Suspect]
     Indication: B-CELL LYMPHOMA
     Dates: start: 200701, end: 201304

REACTIONS (9)
  - Nausea [None]
  - Lymphadenopathy [None]
  - Lymphadenopathy [None]
  - Vomiting [None]
  - Night sweats [None]
  - Fatigue [None]
  - Dyspnoea [None]
  - Hypersomnia [None]
  - Local swelling [None]
